FAERS Safety Report 8962263 (Version 1)
Quarter: 2012Q4

REPORT INFORMATION
  Report Type: 
  Country: US (occurrence: US)
  Receive Date: 20121211
  Receipt Date: 20121211
  Transmission Date: 20130627
  Serious: Yes (Hospitalization)
  Sender: FDA-Public Use
  Company Number: US-ASTELLAS-2012US011945

PATIENT
  Age: 68 Year
  Sex: Male

DRUGS (1)
  1. PROGRAF [Suspect]
     Indication: RENAL TRANSPLANT
     Dosage: 2 mg in AM/1 mg in PM
     Route: 048
     Dates: start: 20080128

REACTIONS (2)
  - Joint injury [Unknown]
  - Fall [Unknown]
